FAERS Safety Report 24125712 (Version 1)
Quarter: 2024Q3

REPORT INFORMATION
  Report Type: Spontaneous
  Country: US (occurrence: None)
  Receive Date: 20240722
  Receipt Date: 20240722
  Transmission Date: 20241017
  Serious: No
  Sender: Public
  Company Number: None

PATIENT
  Age: 39 Year

DRUGS (1)
  1. FASENRA [Suspect]
     Active Substance: BENRALIZUMAB
     Dosage: OTHER FREQUENCY : EVERY 8 WEEKS;?
     Route: 058

REACTIONS (2)
  - SARS-CoV-2 test positive [None]
  - COVID-19 [None]

NARRATIVE: CASE EVENT DATE: 20240701
